FAERS Safety Report 4873069-8 (Version None)
Quarter: 2006Q1

REPORT INFORMATION
  Report Type: 
  Country: None (occurrence: None)
  Receive Date: 20060105
  Receipt Date: 20051209
  Transmission Date: 20060701
  Serious: Yes (Other)
  Sender: FDA-Public Use
  Company Number: CA-BRISTOL-MYERS SQUIBB COMPANY-13218060

PATIENT
  Age: 75 Year
  Sex: Female

DRUGS (16)
  1. TEQUIN [Suspect]
  2. ALLOPURINOL [Concomitant]
  3. BRICANYL [Concomitant]
  4. CALCIUM GLUCONATE [Concomitant]
  5. CLONIDINE [Concomitant]
  6. DIAMICRON [Concomitant]
  7. DIOVAN [Concomitant]
  8. DOXYCYCLINE [Concomitant]
  9. LASIX [Concomitant]
  10. MEVACOR [Concomitant]
  11. PULMICORT [Concomitant]
  12. QUININE [Concomitant]
  13. ROCALTROL [Concomitant]
  14. SERAX [Concomitant]
  15. SYNTHROID [Concomitant]
  16. TIAZAC [Concomitant]

REACTIONS (1)
  - HYPERGLYCAEMIA [None]
